FAERS Safety Report 5309232-1 (Version None)
Quarter: 2007Q2

REPORT INFORMATION
  Report Type: 
  Country: None (occurrence: None)
  Receive Date: 20070423
  Receipt Date: 20070410
  Transmission Date: 20071010
  Serious: Yes (Death)
  Sender: FDA-Public Use
  Company Number: 2007SP005852

PATIENT
  Sex: Male

DRUGS (2)
  1. NOXAFIL [Suspect]
     Indication: DRUG USE FOR UNKNOWN INDICATION
  2. GASTRIC PROTECTOR NOS (DRUGS FOR FUNCTIONAL GASTROINTEST. DISORDERS) [Suspect]
     Indication: GASTRIC DISORDER

REACTIONS (2)
  - DRUG INTERACTION [None]
  - PSEUDOMONAS INFECTION [None]
